FAERS Safety Report 12936077 (Version 1)
Quarter: 2016Q4

REPORT INFORMATION
  Report Type: Spontaneous
  Country: US (occurrence: US)
  Receive Date: 20161111
  Receipt Date: 20161111
  Transmission Date: 20170207
  Serious: Yes (Other)
  Sender: FDA-Public Use
  Company Number: None

PATIENT
  Age: 90 Year
  Sex: Female
  Weight: 77.8 kg

DRUGS (1)
  1. METHYLPREDNISOLONE TABLETS,USP [Suspect]
     Active Substance: METHYLPREDNISOLONE
     Indication: ARTHRITIS
     Dosage: ?          QUANTITY:21 TABLET(S);OTHER FREQUENCY:DOSEPAK;?
     Route: 048
     Dates: start: 20161105, end: 20161107

REACTIONS (5)
  - Heart rate irregular [None]
  - Blood pressure increased [None]
  - Palpitations [None]
  - Dyspnoea [None]
  - Heart rate increased [None]

NARRATIVE: CASE EVENT DATE: 20161107
